FAERS Safety Report 7395459-4 (Version None)
Quarter: 2011Q2

REPORT INFORMATION
  Report Type: 
  Country: None (occurrence: None)
  Receive Date: 20110405
  Receipt Date: 20110331
  Transmission Date: 20111010
  Serious: Yes (Hospitalization, Other)
  Sender: FDA-Public Use
  Company Number: DE-ABBOTT-11P-062-0702030-00

PATIENT
  Sex: Female

DRUGS (2)
  1. HUMIRA [Suspect]
     Indication: CROHN'S DISEASE
     Route: 058
     Dates: start: 20090623
  2. ASACOL [Concomitant]
     Indication: CROHN'S DISEASE
     Dosage: 3 GRAMS DAILY
     Route: 048

REACTIONS (4)
  - SMALL INTESTINE CARCINOMA [None]
  - INTESTINAL STENOSIS [None]
  - COLONIC STENOSIS [None]
  - UTERINE LEIOMYOMA [None]
